FAERS Safety Report 6694525-6 (Version None)
Quarter: 2010Q2

REPORT INFORMATION
  Report Type: 
  Country: None (occurrence: None)
  Receive Date: 20100423
  Receipt Date: 20100420
  Transmission Date: 20101027
  Serious: Yes (Other)
  Sender: FDA-Public Use
  Company Number: BR-JNJCH-2010009557

PATIENT
  Sex: Male

DRUGS (1)
  1. COOL CITRUS LISTERINE MOUTHWASH [Suspect]
     Indication: DRUG USE FOR UNKNOWN INDICATION
     Dosage: TEXT:UNKNOWN
     Route: 048

REACTIONS (4)
  - INFECTION [None]
  - PAIN [None]
  - PRODUCT QUALITY ISSUE [None]
  - SKIN LACERATION [None]
